FAERS Safety Report 14167910 (Version 1)
Quarter: 2017Q4

REPORT INFORMATION
  Report Type: Spontaneous
  Country: US (occurrence: US)
  Receive Date: 20171107
  Receipt Date: 20171107
  Transmission Date: 20180321
  Serious: No
  Sender: FDA-Public Use
  Company Number: US-SUNOVION-2017SUN004823

PATIENT

DRUGS (3)
  1. LATUDA [Suspect]
     Active Substance: LURASIDONE HYDROCHLORIDE
     Dosage: UNK
     Route: 048
  2. RISPERDAL [Suspect]
     Active Substance: RISPERIDONE
     Dosage: UNK
  3. INVEGA [Suspect]
     Active Substance: PALIPERIDONE
     Dosage: UNK

REACTIONS (3)
  - Feeling abnormal [Unknown]
  - Weight increased [Unknown]
  - Dysmenorrhoea [Recovered/Resolved]
